FAERS Safety Report 14324316 (Version 3)
Quarter: 2019Q2

REPORT INFORMATION
  Report Type: Spontaneous
  Country: GB (occurrence: GB)
  Receive Date: 20171226
  Receipt Date: 20190510
  Transmission Date: 20190711
  Serious: Yes (Other)
  Sender: FDA-Public Use
  Company Number: GB-AUROBINDO-AUR-APL-2017-45620

PATIENT

DRUGS (3)
  1. DIAZOXIDE [Suspect]
     Active Substance: DIAZOXIDE
     Indication: PRODUCT USED FOR UNKNOWN INDICATION
     Dosage: DOSE GRADUALLY INCREASED TO 15.9 MG/KG/DAY (MAXIMUM DOSE)
     Route: 065
  2. CLARITHROMYCIN. [Suspect]
     Active Substance: CLARITHROMYCIN
     Indication: DRUG HYPERSENSITIVITY
     Dosage: UNK
     Route: 048
  3. SIROLIMUS. [Suspect]
     Active Substance: SIROLIMUS
     Indication: HYPERINSULINAEMIC HYPOGLYCAEMIA
     Dosage: 4.25 MG/M2, DAILY, DOSE GRADUALLY INCREASED TO 4.25 MG/M2/DAY
     Route: 065

REACTIONS (7)
  - Drug interaction [Recovered/Resolved]
  - Infection [Recovered/Resolved]
  - Drug level increased [Unknown]
  - Diabetes mellitus [Recovering/Resolving]
  - Hypertrichosis [Unknown]
  - Abscess [Recovered/Resolved]
  - Glycosylated haemoglobin increased [Recovering/Resolving]
